FAERS Safety Report 5765640-6 (Version None)
Quarter: 2008Q2

REPORT INFORMATION
  Report Type: 
  Country: None (occurrence: None)
  Receive Date: 20080606
  Receipt Date: 20080606
  Transmission Date: 20081010
  Serious: Yes (Hospitalization)
  Sender: FDA-Public Use
  Company Number: None

PATIENT
  Age: 76 Year
  Sex: Male

DRUGS (2)
  1. INSULIN [Suspect]
     Indication: DIABETES MELLITUS
     Dosage: 3 UNITS TID SQ
     Route: 058
     Dates: start: 20040924
  2. INSULIN [Suspect]
     Indication: DIABETES MELLITUS
     Dosage: 6 UNITS HS SQ
     Route: 058
     Dates: start: 20040924

REACTIONS (10)
  - BALANCE DISORDER [None]
  - BLOOD GLUCOSE DECREASED [None]
  - BRAIN CONTUSION [None]
  - CONVULSION [None]
  - DIZZINESS [None]
  - FALL [None]
  - HYPOGLYCAEMIA [None]
  - PETECHIAE [None]
  - SKULL FRACTURED BASE [None]
  - SYNCOPE [None]
